FAERS Safety Report 16588420 (Version 2)
Quarter: 2019Q4

REPORT INFORMATION
  Report Type: Spontaneous
  Country: NL (occurrence: NL)
  Receive Date: 20190718
  Receipt Date: 20191010
  Transmission Date: 20200122
  Serious: Yes (Death, Hospitalization, Other)
  Sender: FDA-Public Use
  Company Number: NL-AUROBINDO-AUR-APL-2019-040859

PATIENT
  Age: 54 Year
  Sex: Female

DRUGS (9)
  1. METHADON TABLETS [Suspect]
     Active Substance: METHADONE HYDROCHLORIDE
     Indication: PRODUCT USED FOR UNKNOWN INDICATION
     Dosage: 150 MILLIGRAM, TOTAL
     Route: 065
  2. RISPERIDONE. [Suspect]
     Active Substance: RISPERIDONE
     Dosage: 2 MILLIGRAM, ONCE A DAY
     Route: 065
  3. LORAZEPAM. [Suspect]
     Active Substance: LORAZEPAM
     Dosage: UNK UNK, UNKNOWN FREQ.
     Route: 065
  4. LORAZEPAM. [Suspect]
     Active Substance: LORAZEPAM
     Indication: CATATONIA
     Dosage: 4.5 MILLIGRAM, FOUR TIMES/DAY, (6 HOUR)
     Route: 065
  5. METHADON TABLETS [Suspect]
     Active Substance: METHADONE HYDROCHLORIDE
     Dosage: UNK, TAPERED OFF
     Route: 065
  6. METHADON TABLETS [Suspect]
     Active Substance: METHADONE HYDROCHLORIDE
     Dosage: 45 MILLIGRAM, UNKNOWN FREQ
     Route: 065
  7. COCAINE [Suspect]
     Active Substance: COCAINE
     Indication: PRODUCT USED FOR UNKNOWN INDICATION
     Dosage: 45 MILLIGRAM
     Route: 065
  8. METHADON TABLETS [Suspect]
     Active Substance: METHADONE HYDROCHLORIDE
     Dosage: 25 MILLIGRAM, ONCE A DAY
     Route: 065
  9. RISPERIDONE. [Suspect]
     Active Substance: RISPERIDONE
     Indication: PRODUCT USED FOR UNKNOWN INDICATION
     Dosage: 2 MILLIGRAM, DAILY
     Route: 065

REACTIONS (43)
  - Aspartate aminotransferase increased [Recovered/Resolved]
  - Tachycardia [Unknown]
  - Delirium [Unknown]
  - Memory impairment [Unknown]
  - Lung infiltration [Unknown]
  - Aggression [Recovered/Resolved]
  - Tachypnoea [Unknown]
  - Echolalia [Unknown]
  - Septic shock [Unknown]
  - Toxic leukoencephalopathy [Fatal]
  - Neuroleptic malignant syndrome [Unknown]
  - Stupor [Unknown]
  - Dysphoria [Recovered/Resolved]
  - Apraxia [Unknown]
  - Renal impairment [Unknown]
  - Unresponsive to stimuli [Recovered/Resolved]
  - Muscle rigidity [Unknown]
  - Restlessness [Unknown]
  - Influenza like illness [Unknown]
  - General physical health deterioration [Unknown]
  - Hyporeflexia [Unknown]
  - Mental impairment [Recovered/Resolved]
  - Hypoxia [Unknown]
  - Pneumonia [Unknown]
  - Alanine aminotransferase increased [Recovered/Resolved]
  - Hypotonia [Unknown]
  - Loss of consciousness [Recovered/Resolved]
  - Catatonia [Fatal]
  - C-reactive protein increased [Unknown]
  - Metabolic encephalopathy [Unknown]
  - Disorientation [Unknown]
  - Bradypnoea [Unknown]
  - Confusional state [Unknown]
  - Death [Fatal]
  - Drug withdrawal syndrome [Unknown]
  - Mutism [Unknown]
  - Pyrexia [Unknown]
  - Pulmonary sepsis [Unknown]
  - Toxicity to various agents [Recovered/Resolved]
  - Hypotension [Unknown]
  - Pupillary light reflex tests abnormal [Unknown]
  - Hypertension [Unknown]
  - Blood creatine phosphokinase increased [Unknown]
